FAERS Safety Report 6641498-8 (Version None)
Quarter: 2010Q1

REPORT INFORMATION
  Report Type: 
  Country: None (occurrence: None)
  Receive Date: 20100318
  Receipt Date: 20100305
  Transmission Date: 20100710
  Serious: Yes (Other)
  Sender: FDA-Public Use
  Company Number: AT-WATSON-2010-02661

PATIENT
  Age: 15 Year
  Sex: Female

DRUGS (4)
  1. DEXAMETHASONE [Suspect]
     Indication: LEUKAEMIA
     Dosage: 10 MG/M2, DAYS 1-21
  2. VINCRISTINE [Suspect]
     Indication: LEUKAEMIA
     Dosage: 1.5 MG/M2, DAYS 8,15,22 + 29
  3. DOXORUBICIN [Suspect]
     Indication: LEUKAEMIA
     Dosage: 30 MG/M2, DAYS 8,15,22 + 29
  4. ASPARAGINASE [Suspect]
     Indication: LEUKAEMIA
     Dosage: 1000 UG/M2, DAYS 8,11,15 + 18

REACTIONS (1)
  - ACUTE RESPIRATORY DISTRESS SYNDROME [None]
